FAERS Safety Report 6077648-4 (Version None)
Quarter: 2009Q1

REPORT INFORMATION
  Report Type: 
  Country: None (occurrence: None)
  Receive Date: 20090126
  Receipt Date: 20080407
  Transmission Date: 20090719
  Serious: Yes (Disabling, Other)
  Sender: FDA-Public Use
  Company Number: WAES 0804USA01877

PATIENT
  Age: 47 Year
  Sex: Female

DRUGS (3)
  1. PRIMAXIN [Suspect]
     Indication: PNEUMONIA
     Dosage: 750 MG/Q8H/IV
     Route: 042
     Dates: start: 20080401
  2. TYGACIL [Concomitant]
  3. [THERAPY UNSPECIFIED] [Concomitant]

REACTIONS (2)
  - NAUSEA [None]
  - VOMITING [None]
